FAERS Safety Report 14946923 (Version 1)
Quarter: 2018Q2

REPORT INFORMATION
  Report Type: Report from Study
  Country: CA (occurrence: CA)
  Receive Date: 20180529
  Receipt Date: 20180529
  Transmission Date: 20180711
  Serious: Yes (Other)
  Sender: FDA-Public Use
  Company Number: CA-JNJFOC-20180532891

PATIENT
  Sex: Male
  Weight: 105 kg

DRUGS (1)
  1. REMICADE [Suspect]
     Active Substance: INFLIXIMAB
     Indication: COLITIS ULCERATIVE
     Route: 042

REACTIONS (4)
  - Lupus-like syndrome [Unknown]
  - Off label use [Unknown]
  - Product use issue [Unknown]
  - Hepatic fibrosis [Not Recovered/Not Resolved]
